FAERS Safety Report 17537770 (Version 1)
Quarter: 2020Q1

REPORT INFORMATION
  Report Type: Spontaneous
  Country: US (occurrence: US)
  Receive Date: 20200313
  Receipt Date: 20200313
  Transmission Date: 20200409
  Serious: No
  Sender: FDA-Public Use
  Company Number: US-TEVA-2019-US-1034283

PATIENT

DRUGS (1)
  1. CINQAIR [Suspect]
     Active Substance: RESLIZUMAB
     Dosage: PATIENT IS AT 4TH INJECTION
     Route: 042

REACTIONS (5)
  - Rash [Unknown]
  - Injection site erythema [Unknown]
  - Injection site swelling [Unknown]
  - Erythema [Unknown]
  - Hypersensitivity [Unknown]
